FAERS Safety Report 8320407-X (Version None)
Quarter: 2012Q2

REPORT INFORMATION
  Report Type: 
  Country: None (occurrence: None)
  Receive Date: 20120426
  Receipt Date: 20120426
  Transmission Date: 20120825
  Serious: No
  Sender: FDA-Public Use
  Company Number: None

PATIENT
  Sex: Male
  Weight: 81.6475 kg

DRUGS (1)
  1. CIALIS [Suspect]
     Indication: ERECTILE DYSFUNCTION
     Dosage: 1 TAB PER DAY DAILY  4/08 - 4/10

REACTIONS (4)
  - HEADACHE [None]
  - RHINORRHOEA [None]
  - BACK PAIN [None]
  - RESTLESS LEGS SYNDROME [None]
